FAERS Safety Report 5896552-5 (Version None)
Quarter: 2008Q3

REPORT INFORMATION
  Report Type: 
  Country: None (occurrence: None)
  Receive Date: 20080923
  Receipt Date: 20080915
  Transmission Date: 20090109
  Serious: Yes (Hospitalization)
  Sender: FDA-Public Use
  Company Number: SPI200800283

PATIENT
  Age: 72 Year
  Sex: Male

DRUGS (11)
  1. AMITIZA [Suspect]
     Indication: CONSTIPATION
     Dosage: 24 MCG, ORAL
     Route: 048
     Dates: start: 20080101, end: 20080101
  2. AVODART [Concomitant]
  3. TRAZODONE HCL [Concomitant]
  4. CASODEX [Concomitant]
  5. LISINOPRIL [Concomitant]
  6. FORADIL [Concomitant]
  7. OVAR [Concomitant]
  8. ALBUTEROL /00139501/ (SALBUTAMOL) [Concomitant]
  9. MAXIFIED (GUAIFENSESIN, PSEUDOEPHEDRINE HYDROCHLORIDE) [Concomitant]
  10. XOPENEX [Concomitant]
  11. BENADRYL /00000402/ (DIPHENHYDRAMINE HYDROCHLOIRDE) [Concomitant]

REACTIONS (1)
  - COLITIS ISCHAEMIC [None]
